FAERS Safety Report 6544435-X (Version None)
Quarter: 2010Q1

REPORT INFORMATION
  Report Type: 
  Country: None (occurrence: None)
  Receive Date: 20100120
  Receipt Date: 20100120
  Transmission Date: 20100710
  Serious: Yes (Life-Threatening, Hospitalization)
  Sender: FDA-Public Use
  Company Number: None

PATIENT
  Age: 39 Year
  Sex: Female
  Weight: 54.4316 kg

DRUGS (1)
  1. COMPOUND W WART REMOVER ONE STEP [Suspect]
     Indication: WART EXCISION
     Dosage: 1 BANDAID
     Dates: start: 20090906, end: 20090908

REACTIONS (4)
  - APPLICATION SITE REACTION [None]
  - DRUG INEFFECTIVE [None]
  - SKIN DISORDER [None]
  - STAPHYLOCOCCAL SKIN INFECTION [None]
